FAERS Safety Report 6214160-3 (Version None)
Quarter: 2009Q2

REPORT INFORMATION
  Report Type: 
  Country: None (occurrence: None)
  Receive Date: 20090602
  Receipt Date: 20090519
  Transmission Date: 20091009
  Serious: Yes (Hospitalization)
  Sender: FDA-Public Use
  Company Number: 230279K09BRA

PATIENT
  Sex: Female

DRUGS (2)
  1. REBIF [Suspect]
     Indication: RELAPSING-REMITTING MULTIPLE SCLEROSIS
     Dosage: 44 MCG, 3 IN 1 WEEKS
     Dates: start: 20060925
  2. TRILEPTAL [Concomitant]

REACTIONS (5)
  - HEADACHE [None]
  - HYPOAESTHESIA [None]
  - NERVOUS SYSTEM DISORDER [None]
  - PARAESTHESIA [None]
  - PARALYSIS [None]
